FAERS Safety Report 18169544 (Version 1)
Quarter: 2020Q3

REPORT INFORMATION
  Report Type: Spontaneous
  Country: US (occurrence: US)
  Receive Date: 20200819
  Receipt Date: 20200819
  Transmission Date: 20201103
  Serious: No
  Sender: FDA-Public Use
  Company Number: None

PATIENT
  Age: 78 Year
  Sex: Female
  Weight: 106.1 kg

DRUGS (18)
  1. XARELTO [Concomitant]
     Active Substance: RIVAROXABAN
  2. ATENOLOL. [Concomitant]
     Active Substance: ATENOLOL
  3. LOPERAMIDE [Concomitant]
     Active Substance: LOPERAMIDE
  4. PERCOCET [Concomitant]
     Active Substance: ACETAMINOPHEN\OXYCODONE HYDROCHLORIDE
  5. RANITIDINE. [Concomitant]
     Active Substance: RANITIDINE
  6. LANTUS [Concomitant]
     Active Substance: INSULIN GLARGINE
  7. GLIPIZIDE. [Concomitant]
     Active Substance: GLIPIZIDE
  8. ALPRAZOLAM. [Concomitant]
     Active Substance: ALPRAZOLAM
  9. SYNTHROID [Concomitant]
     Active Substance: LEVOTHYROXINE SODIUM
  10. PROVENTIL [Concomitant]
     Active Substance: ALBUTEROL
  11. LIDOCAINE. [Concomitant]
     Active Substance: LIDOCAINE
  12. MUCINEX [Concomitant]
     Active Substance: GUAIFENESIN
  13. BRAFTOVI [Suspect]
     Active Substance: ENCORAFENIB
     Indication: THYROID CANCER
     Route: 048
     Dates: start: 20190405, end: 20200819
  14. MEKTOVI [Suspect]
     Active Substance: BINIMETINIB
     Indication: THYROID CANCER
     Route: 048
     Dates: start: 20190405, end: 20200819
  15. ZOLPIDEM [Concomitant]
     Active Substance: ZOLPIDEM TARTRATE
  16. SIMVASTATIN. [Concomitant]
     Active Substance: SIMVASTATIN
  17. GABAPENTIN. [Concomitant]
     Active Substance: GABAPENTIN
  18. HUMALOG [Concomitant]
     Active Substance: INSULIN LISPRO

REACTIONS (1)
  - Hospice care [None]

NARRATIVE: CASE EVENT DATE: 20200819
